FAERS Safety Report 6183068-4 (Version None)
Quarter: 2009Q2

REPORT INFORMATION
  Report Type: 
  Country: None (occurrence: None)
  Receive Date: 20090507
  Receipt Date: 20090429
  Transmission Date: 20091009
  Serious: Yes (Death, Life-Threatening, Hospitalization, Other)
  Sender: FDA-Public Use
  Company Number: US-ABBOTT-09P-163-0570541-00

PATIENT
  Sex: Female
  Weight: 61.29 kg

DRUGS (16)
  1. ZEMPLAR [Suspect]
     Indication: HYPERPARATHYROIDISM
     Route: 048
     Dates: start: 20080501, end: 20080801
  2. ZEMPLAR [Suspect]
     Dates: start: 20080901, end: 20090202
  3. AMLODIPINE [Concomitant]
     Indication: HYPERTENSION
     Route: 048
     Dates: end: 20090202
  4. CARVEDILOL [Concomitant]
     Indication: HYPERTENSION
     Route: 048
     Dates: end: 20090202
  5. CLONIDINE [Concomitant]
     Indication: HYPERTENSION
     Route: 048
     Dates: end: 20090202
  6. SERTRALINE HCL [Concomitant]
     Indication: DEPRESSION
     Route: 048
     Dates: end: 20090202
  7. FOSAMAX [Concomitant]
     Indication: OSTEOPOROSIS
     Route: 048
     Dates: end: 20090202
  8. PROTONIX [Concomitant]
     Indication: MOUTH ULCERATION
     Route: 048
     Dates: start: 20080901, end: 20090202
  9. PROTONIX [Concomitant]
     Indication: OESOPHAGEAL ULCER
  10. SYNTHROID [Concomitant]
     Indication: HYPOTHYROIDISM
     Route: 048
     Dates: end: 20090202
  11. MULTIPLE VITAMINS [Concomitant]
     Indication: ROUTINE HEALTH MAINTENANCE
     Dates: end: 20090202
  12. FERROUS SULFATE TAB [Concomitant]
     Indication: ANAEMIA
     Route: 048
     Dates: end: 20090202
  13. ASPIRIN [Concomitant]
     Indication: ROUTINE HEALTH MAINTENANCE
     Dates: end: 20090202
  14. VITAMIN-MINERAL COMPOUND TAB [Concomitant]
     Indication: MACULAR DEGENERATION
     Dates: end: 20090202
  15. HECTOROL [Concomitant]
     Indication: HYPERPARATHYROIDISM
     Dates: start: 20080801, end: 20080901
  16. VITAMIN D [Concomitant]
     Indication: HYPERPARATHYROIDISM
     Dates: start: 20070601, end: 20070601

REACTIONS (9)
  - BILE DUCT OBSTRUCTION [None]
  - CARDIAC ARREST [None]
  - CHOLELITHIASIS [None]
  - DEHYDRATION [None]
  - JAUNDICE [None]
  - MOUTH ULCERATION [None]
  - OESOPHAGEAL ULCER [None]
  - VOMITING [None]
  - VULVAL CANCER [None]
